FAERS Safety Report 6727995-5 (Version None)
Quarter: 2010Q2

REPORT INFORMATION
  Report Type: 
  Country: None (occurrence: None)
  Receive Date: 20100517
  Receipt Date: 20100510
  Transmission Date: 20101027
  Serious: Yes (Disabling)
  Sender: FDA-Public Use
  Company Number: US-GENENTECH-282644

PATIENT
  Sex: Female
  Weight: 43.537 kg

DRUGS (6)
  1. RITUXAN [Suspect]
     Indication: NON-HODGKIN'S LYMPHOMA
     Dosage: UNK
     Dates: start: 20090206, end: 20090227
  2. CYCLOPHOSPHAMIDE [Concomitant]
     Indication: NON-HODGKIN'S LYMPHOMA
     Dosage: UNK
     Dates: start: 20080501
  3. DOXORUBICIN HCL [Concomitant]
     Indication: NON-HODGKIN'S LYMPHOMA
     Dosage: UNK
     Dates: start: 20080501
  4. VINCRISTINE [Concomitant]
     Indication: NON-HODGKIN'S LYMPHOMA
     Dosage: UNK
     Dates: start: 20080501
  5. PREDNISONE [Concomitant]
     Indication: NON-HODGKIN'S LYMPHOMA
     Dosage: UNK
     Dates: start: 20080501
  6. PREDNISONE [Concomitant]
     Dosage: UNK
     Dates: start: 20090201

REACTIONS (1)
  - OPTIC NEUROPATHY [None]
